FAERS Safety Report 9097294 (Version 1)
Quarter: 2013Q1

REPORT INFORMATION
  Report Type: Report from Study
  Country: ES (occurrence: ES)
  Receive Date: 20130212
  Receipt Date: 20130212
  Transmission Date: 20140127
  Serious: Yes (Hospitalization)
  Sender: FDA-Public Use
  Company Number: ES-ROCHE-1187272

PATIENT
  Age: 76 Year
  Sex: Female

DRUGS (4)
  1. PERTUZUMAB [Suspect]
     Indication: BREAST CANCER
     Route: 042
     Dates: start: 20130122
  2. TRASTUZUMAB [Suspect]
     Indication: BREAST CANCER
     Dosage: ALL DOSING INFORMATION AS PER PROTOCOL
     Route: 042
  3. TRASTUZUMAB [Suspect]
     Dosage: ALL DOSING INFORMATION AS PER PROTOCOL
     Route: 042
  4. DOCETAXEL [Suspect]
     Indication: BREAST CANCER
     Dosage: ALL DOSING INFORMATION AS PER PROTOCOL
     Route: 065

REACTIONS (1)
  - Caecitis [Recovering/Resolving]
